FAERS Safety Report 13825847 (Version 1)
Quarter: 2017Q3

REPORT INFORMATION
  Report Type: Spontaneous
  Country: US (occurrence: US)
  Receive Date: 20170802
  Receipt Date: 20170802
  Transmission Date: 20171127
  Serious: No
  Sender: FDA-Public Use
  Company Number: US-ACTELION-A-NJ2017-157443

PATIENT
  Age: 69 Year
  Sex: Female

DRUGS (2)
  1. BUMEX [Suspect]
     Active Substance: BUMETANIDE
     Indication: OEDEMA PERIPHERAL
     Route: 065
  2. OPSUMIT [Suspect]
     Active Substance: MACITENTAN
     Indication: PULMONARY ARTERIAL HYPERTENSION
     Dosage: 10 MG, QD
     Route: 048
     Dates: start: 20170705, end: 20170722

REACTIONS (3)
  - Peripheral swelling [Unknown]
  - Gout [Unknown]
  - Arthralgia [Unknown]
